FAERS Safety Report 7080538-1 (Version None)
Quarter: 2010Q4

REPORT INFORMATION
  Report Type: 
  Country: None (occurrence: None)
  Receive Date: 20101103
  Receipt Date: 20100209
  Transmission Date: 20110411
  Serious: Yes (Death)
  Sender: FDA-Public Use
  Company Number: US-AMGEN-USASP2010001978

PATIENT

DRUGS (1)
  1. NPLATE [Suspect]

REACTIONS (1)
  - DEATH [None]
